FAERS Safety Report 20917387 (Version 1)
Quarter: 2022Q2

REPORT INFORMATION
  Report Type: Other
  Country: DE (occurrence: DE)
  Receive Date: 20220606
  Receipt Date: 20220606
  Transmission Date: 20220721
  Serious: Yes (Death)
  Sender: FDA-Public Use
  Company Number: DE-CELLTRION INC.-2022DE008292

PATIENT

DRUGS (9)
  1. RITUXIMAB [Suspect]
     Active Substance: RITUXIMAB
     Indication: B-cell lymphoma
     Dosage: R-CEOP, 6 CYCLES
     Route: 065
     Dates: start: 20190712, end: 20190919
  2. RITUXIMAB [Suspect]
     Active Substance: RITUXIMAB
     Dosage: 2ND LINE, RITUXIMAB/GEMCITABINE
     Route: 065
     Dates: start: 20190523, end: 20190708
  3. RITUXIMAB [Suspect]
     Active Substance: RITUXIMAB
     Dosage: 1ST LINE, R-CHOP, 6 CYCLES
     Route: 065
     Dates: start: 20160401, end: 20160613
  4. CYCLOPHOSPHAMIDE\DOXORUBICIN\PREDNISONE\VINCRISTINE [Suspect]
     Active Substance: CYCLOPHOSPHAMIDE\DOXORUBICIN\PREDNISONE\VINCRISTINE
     Indication: B-cell lymphoma
     Dosage: 1ST LINE, R-CHOP, 6 CYCLES
     Route: 065
     Dates: start: 20160401, end: 20160613
  5. CYCLOPHOSPHAMIDE [Suspect]
     Active Substance: CYCLOPHOSPHAMIDE
     Indication: B-cell lymphoma
     Dosage: R-CEOP, 6 CYCLES
     Route: 065
     Dates: start: 20190712, end: 20190919
  6. GEMCITABINE [Suspect]
     Active Substance: GEMCITABINE
     Indication: B-cell lymphoma
     Dosage: 2ND LINE, RITUXIMAB/GEMCITABINE
     Route: 065
     Dates: start: 20190523, end: 20190708
  7. EPIRUBICIN [Suspect]
     Active Substance: EPIRUBICIN
  8. PREDNISONE [Suspect]
     Active Substance: PREDNISONE
  9. VINCRISTINE [Suspect]
     Active Substance: VINCRISTINE

REACTIONS (2)
  - Death [Fatal]
  - Aspartate aminotransferase increased [Unknown]

NARRATIVE: CASE EVENT DATE: 20191021
